FAERS Safety Report 18800506 (Version 1)
Quarter: 2021Q1

REPORT INFORMATION
  Report Type: Spontaneous
  Country: CH (occurrence: CH)
  Receive Date: 20210128
  Receipt Date: 20210128
  Transmission Date: 20210419
  Serious: Yes (Other)
  Sender: FDA-Public Use
  Company Number: CH-OTSUKA-2021_002391

PATIENT
  Age: 45 Year
  Sex: Female

DRUGS (2)
  1. REXULTI [Suspect]
     Active Substance: BREXPIPRAZOLE
     Dosage: 2 MG, UNK
     Route: 065
  2. REXULTI [Suspect]
     Active Substance: BREXPIPRAZOLE
     Indication: PRODUCT USE IN UNAPPROVED INDICATION
     Dosage: 1 MG, UNK
     Route: 065

REACTIONS (10)
  - Heart rate irregular [Unknown]
  - Heart rate increased [Unknown]
  - Nausea [Unknown]
  - Product use in unapproved indication [Unknown]
  - Body temperature decreased [Unknown]
  - Altered state of consciousness [Unknown]
  - Hyperhidrosis [Unknown]
  - Hypokinesia [Unknown]
  - Hypotension [Unknown]
  - Dizziness [Unknown]
